FAERS Safety Report 9101491 (Version 1)
Quarter: 2013Q1

REPORT INFORMATION
  Report Type: Report from Study
  Country: US (occurrence: US)
  Receive Date: 20130218
  Receipt Date: 20130218
  Transmission Date: 20140127
  Serious: Yes (Hospitalization, Other)
  Sender: FDA-Public Use
  Company Number: US-ROCHE-1074017

PATIENT
  Age: 50 Year
  Sex: Female
  Weight: 74 kg

DRUGS (8)
  1. CAPECITABINE [Suspect]
     Indication: PRODUCT USED FOR UNKNOWN INDICATION
     Dosage: 2 WEEKS ON AND 1 WEEK OFF FOR 3 CYCLES
     Route: 048
  2. CAPECITABINE [Suspect]
     Dosage: DOSE DECRESED
     Route: 048
  3. CAPECITABINE [Suspect]
     Route: 048
     Dates: start: 20120315, end: 201210
  4. CAPECITABINE [Suspect]
     Route: 048
     Dates: start: 201210, end: 201212
  5. CAPECITABINE [Suspect]
     Route: 048
     Dates: start: 201212
  6. VINORELBINE [Suspect]
     Indication: PRODUCT USED FOR UNKNOWN INDICATION
     Dosage: ON DAY 1,8 AND OFF ONE WEEK FOR 3 CYCLES
     Route: 042
  7. GUAIFENESIN [Concomitant]
     Route: 048
     Dates: start: 201301
  8. METHOTREXATE [Concomitant]
     Route: 037
     Dates: start: 201301

REACTIONS (14)
  - Hypoglycaemia [Unknown]
  - Toxicity to various agents [Unknown]
  - Palmar-plantar erythrodysaesthesia syndrome [Not Recovered/Not Resolved]
  - Blindness unilateral [Not Recovered/Not Resolved]
  - Visual acuity reduced [Not Recovered/Not Resolved]
  - Convulsion [Unknown]
  - Sinus disorder [Unknown]
  - Headache [Not Recovered/Not Resolved]
  - Fungal infection [Not Recovered/Not Resolved]
  - Candida infection [Not Recovered/Not Resolved]
  - Oedema peripheral [Recovered/Resolved]
  - Neuropathy peripheral [Recovered/Resolved]
  - Cough [Not Recovered/Not Resolved]
  - Diarrhoea [Unknown]
